FAERS Safety Report 4862571-0 (Version None)
Quarter: 2005Q4

REPORT INFORMATION
  Report Type: 
  Country: None (occurrence: None)
  Receive Date: 20051221
  Receipt Date: 20051220
  Transmission Date: 20060501
  Serious: Yes (Hospitalization)
  Sender: FDA-Public Use
  Company Number: FR-GLAXOSMITHKLINE-B0404265A

PATIENT
  Age: 54 Year
  Sex: Female

DRUGS (9)
  1. CLAMOXYL [Suspect]
     Indication: BRONCHITIS
     Route: 048
     Dates: start: 20051001, end: 20051006
  2. NOOTROPYL [Concomitant]
     Dosage: 3UNIT THREE TIMES PER DAY
     Route: 048
  3. SOTALOL HCL [Concomitant]
     Dosage: 1.5UNIT PER DAY
     Route: 048
  4. DEPAKENE [Concomitant]
     Dosage: 1000MG PER DAY
     Route: 048
  5. SINTROM [Concomitant]
     Dosage: 2MG PER DAY
     Route: 048
  6. DEPAKENE [Concomitant]
     Dosage: 200MG PER DAY
     Route: 048
  7. DEPRENYL [Concomitant]
     Dosage: 1TAB PER DAY
     Route: 048
  8. SPECIAFOLDINE [Concomitant]
     Dosage: 2UNIT TWICE PER DAY
  9. DAFLON [Concomitant]
     Dosage: 1UNIT TWICE PER DAY

REACTIONS (6)
  - DERMATITIS BULLOUS [None]
  - PALATAL DISORDER [None]
  - PURPURA [None]
  - RASH MACULO-PAPULAR [None]
  - SKIN DISORDER [None]
  - TOXIC SKIN ERUPTION [None]
